FAERS Safety Report 15042905 (Version 1)
Quarter: 2018Q2

REPORT INFORMATION
  Report Type: Spontaneous
  Country: FR (occurrence: FR)
  Receive Date: 20180621
  Receipt Date: 20180621
  Transmission Date: 20180711
  Serious: Yes (Hospitalization, Other)
  Sender: FDA-Public Use
  Company Number: FR-MYLANLABS-2018M1041073

PATIENT
  Age: 59 Year
  Sex: Female

DRUGS (4)
  1. OMEPRAZOLE. [Suspect]
     Active Substance: OMEPRAZOLE
     Indication: GASTROINTESTINAL DISORDER THERAPY
     Dosage: 20 MG, QD
     Route: 048
     Dates: end: 201803
  2. CHRONO-INDOCID [Interacting]
     Active Substance: INDOMETHACIN
     Indication: INFLAMMATION
     Dosage: 150 MG, QD
     Route: 048
     Dates: start: 2004, end: 20180306
  3. INDOCID                            /00003801/ [Interacting]
     Active Substance: INDOMETHACIN
     Indication: INFLAMMATION
     Dosage: 25 MG, QD
     Route: 048
     Dates: start: 2004, end: 20180306
  4. IMETH                              /00113801/ [Interacting]
     Active Substance: METHOTREXATE
     Indication: PSORIATIC ARTHROPATHY
     Dosage: 10 MG, QW
     Route: 048
     Dates: start: 2004, end: 20180306

REACTIONS (2)
  - Pancytopenia [Not Recovered/Not Resolved]
  - Drug interaction [Unknown]

NARRATIVE: CASE EVENT DATE: 20180305
